FAERS Safety Report 6744200-4 (Version None)
Quarter: 2010Q2

REPORT INFORMATION
  Report Type: 
  Country: None (occurrence: None)
  Receive Date: 20100525
  Receipt Date: 20100514
  Transmission Date: 20101027
  Serious: Yes (Death, Other)
  Sender: FDA-Public Use
  Company Number: 008-50794-10051426

PATIENT

DRUGS (8)
  1. VIDAZA [Suspect]
     Indication: MYELODYSPLASTIC SYNDROME
     Dosage: SEE IMAGE
     Route: 058
  2. BLOOD TRANSFUSION(BLOOD TRANSFUSION, AUXILIARY PRODUCTS)(INJECTION) [Concomitant]
  3. ANTIBIOTICS (ANTIBIOTICS) [Concomitant]
  4. G-CSF (GRANULOCYTE COLONY STIMULATING FACTOR) [Concomitant]
  5. CYTARABINE [Concomitant]
  6. DAUNORUBICIN (DAUNORUBICIN) (INJECTION FOR INFUSION) [Concomitant]
  7. IDARUBICIN (IDARUBICIN) (INJECTION FOR INFUSION) [Concomitant]
  8. MITOXANTRONE (MITOXANTRONE) (INJECTION FOR INFUSION) [Concomitant]

REACTIONS (22)
  - ANAEMIA [None]
  - ATRIAL FIBRILLATION [None]
  - BRONCHITIS [None]
  - BRONCHOPULMONARY ASPERGILLOSIS [None]
  - CATHETER SITE HAEMORRHAGE [None]
  - DISEASE PROGRESSION [None]
  - DIZZINESS [None]
  - DYSPNOEA [None]
  - FATIGUE [None]
  - FEBRILE NEUTROPENIA [None]
  - HAEMATEMESIS [None]
  - MYOCARDIAL INFARCTION [None]
  - NEUTROPENIA [None]
  - NEUTROPENIC SEPSIS [None]
  - PNEUMONIA [None]
  - PYREXIA [None]
  - RESPIRATORY TRACT INFECTION [None]
  - SEPSIS [None]
  - SEPTIC SHOCK [None]
  - THROMBOCYTOPENIA [None]
  - UPPER RESPIRATORY TRACT INFECTION [None]
  - URINARY TRACT INFECTION [None]
